FAERS Safety Report 12159900 (Version 12)
Quarter: 2018Q1

REPORT INFORMATION
  Report Type: Report from Study
  Country: CA (occurrence: CA)
  Receive Date: 20160308
  Receipt Date: 20180202
  Transmission Date: 20180508
  Serious: Yes (Other)
  Sender: FDA-Public Use
  Company Number: PHHY2015CA114405

PATIENT
  Age: 53 Year
  Sex: Female

DRUGS (12)
  1. ENBREL [Concomitant]
     Active Substance: ETANERCEPT
     Indication: PRODUCT USED FOR UNKNOWN INDICATION
     Route: 065
  2. METFORMIN [Concomitant]
     Active Substance: METFORMIN HYDROCHLORIDE
     Indication: DIABETES MELLITUS
     Route: 065
  3. COSENTYX [Suspect]
     Active Substance: SECUKINUMAB
     Indication: PSORIASIS
     Dosage: 300 MG, QW
     Route: 058
     Dates: start: 20150915, end: 20151006
  4. COSENTYX [Suspect]
     Active Substance: SECUKINUMAB
     Dosage: 300 MG, QMO
     Route: 058
     Dates: start: 20170622
  5. BETAMETHASONE DIPROPIONATE W/CALCIPOTRIOL [Concomitant]
     Indication: PRODUCT USED FOR UNKNOWN INDICATION
     Route: 065
  6. COSENTYX [Suspect]
     Active Substance: SECUKINUMAB
     Dosage: 300 MG, QMO
     Route: 058
     Dates: start: 20171227
  7. COVERSYL [Suspect]
     Active Substance: PERINDOPRIL
     Indication: HYPERTENSION
     Route: 065
  8. COSENTYX [Suspect]
     Active Substance: SECUKINUMAB
     Dosage: 300 MG, QMO
     Route: 058
     Dates: start: 20180118
  9. COSENTYX [Suspect]
     Active Substance: SECUKINUMAB
     Dosage: 300 MG, QMO
     Route: 058
     Dates: start: 20151013
  10. COSENTYX [Suspect]
     Active Substance: SECUKINUMAB
     Dosage: 300 MG, TWICE A MONTH
     Route: 058
     Dates: start: 20170421
  11. CLOBETASOL [Suspect]
     Active Substance: CLOBETASOL
     Indication: PRODUCT USED FOR UNKNOWN INDICATION
     Route: 065
  12. METHOTREXATE. [Concomitant]
     Active Substance: METHOTREXATE
     Indication: PRODUCT USED FOR UNKNOWN INDICATION
     Route: 065

REACTIONS (26)
  - Renal haemorrhage [Unknown]
  - Skin fissures [Recovering/Resolving]
  - Psoriasis [Unknown]
  - Pruritus [Recovering/Resolving]
  - Fall [Unknown]
  - Aphasia [Unknown]
  - Pruritus [Recovered/Resolved]
  - Headache [Unknown]
  - Pain [Unknown]
  - Inappropriate schedule of drug administration [Unknown]
  - Eye pain [Unknown]
  - Skin haemorrhage [Unknown]
  - Neck mass [Unknown]
  - Drug prescribing error [Unknown]
  - Cerebrovascular accident [Unknown]
  - Therapy partial responder [Unknown]
  - Product storage error [Unknown]
  - Renal cyst [Unknown]
  - Dizziness [Unknown]
  - Injection site discolouration [Recovered/Resolved]
  - Rash [Unknown]
  - Hypertension [Unknown]
  - Stress [Unknown]
  - Impaired healing [Not Recovered/Not Resolved]
  - Injection site haemorrhage [Recovered/Resolved]
  - Rash macular [Recovering/Resolving]

NARRATIVE: CASE EVENT DATE: 2015
